FAERS Safety Report 6231448-0 (Version None)
Quarter: 2009Q2

REPORT INFORMATION
  Report Type: 
  Country: None (occurrence: None)
  Receive Date: 20090616
  Receipt Date: 20090602
  Transmission Date: 20091009
  Serious: Yes (Hospitalization)
  Sender: FDA-Public Use
  Company Number: JP-AMGEN-US339174

PATIENT
  Sex: Female
  Weight: 70 kg

DRUGS (18)
  1. ENBREL [Suspect]
     Indication: RHEUMATOID ARTHRITIS
     Route: 058
     Dates: start: 20080904, end: 20090305
  2. PROGRAF [Concomitant]
     Indication: RHEUMATOID ARTHRITIS
     Route: 048
     Dates: start: 20080904
  3. PROGRAF [Concomitant]
     Route: 048
     Dates: start: 20070101, end: 20080903
  4. PREDONINE [Concomitant]
     Indication: RHEUMATOID ARTHRITIS
     Route: 048
     Dates: start: 20080820, end: 20081203
  5. PREDONINE [Concomitant]
     Route: 048
     Dates: start: 20081204, end: 20090304
  6. PREDONINE [Concomitant]
     Route: 048
     Dates: start: 20070101, end: 20080819
  7. PREDNISOLONE [Concomitant]
     Indication: RHEUMATOID ARTHRITIS
     Route: 048
     Dates: start: 20081204, end: 20090107
  8. PREDNISOLONE [Concomitant]
     Route: 048
     Dates: start: 20090108, end: 20090304
  9. INFREE [Concomitant]
     Indication: RHEUMATOID ARTHRITIS
     Route: 048
     Dates: start: 20080904
  10. MEXITIL [Concomitant]
     Indication: DIABETIC NEUROPATHY
     Route: 048
     Dates: start: 20080904, end: 20090304
  11. BONALON [Concomitant]
     Indication: OSTEOPOROSIS
     Route: 048
     Dates: start: 20080904, end: 20090304
  12. OMEPRAL [Concomitant]
     Indication: REFLUX OESOPHAGITIS
     Route: 048
     Dates: start: 20080904
  13. CELESTAMINE [Concomitant]
     Indication: URTICARIA
     Route: 048
     Dates: start: 20080904
  14. ACTOS [Concomitant]
     Indication: GLUCOSE TOLERANCE IMPAIRED
     Route: 048
     Dates: start: 20080904
  15. POLYCARBOPHIL CALCIUM [Concomitant]
     Indication: CONSTIPATION
     Route: 048
     Dates: start: 20080904, end: 20090304
  16. ISCOTIN [Concomitant]
     Indication: ANTIBIOTIC PROPHYLAXIS
     Route: 048
     Dates: start: 20080904
  17. AZULFIDINE EN-TABS [Concomitant]
     Indication: RHEUMATOID ARTHRITIS
     Route: 048
     Dates: start: 20070101
  18. HIBON [Concomitant]
     Indication: STOMATITIS
     Route: 048
     Dates: start: 20080904

REACTIONS (3)
  - DEMYELINATION [None]
  - MYELITIS [None]
  - VASCULITIS [None]
